FAERS Safety Report 21313255 (Version 1)
Quarter: 2022Q3

REPORT INFORMATION
  Report Type: Spontaneous
  Country: US (occurrence: None)
  Receive Date: 20220909
  Receipt Date: 20220909
  Transmission Date: 20221027
  Serious: Yes (unspecified)
  Sender: FDA-Public Use
  Company Number: None

PATIENT
  Age: 50 Year
  Sex: Female
  Weight: 90 kg

DRUGS (7)
  1. LITHIUM [Suspect]
     Active Substance: LITHIUM
     Indication: Affective disorder
     Dosage: 300 MG TWICE A DAY ORAL
     Route: 048
     Dates: start: 20220414, end: 20220518
  2. Amlodipine - 5mg by mouth daily [Concomitant]
  3. Cholecalciferol - 25 mcg by mouth daily [Concomitant]
  4. Ferrous Sulfate - 325 mg by mouth daily [Concomitant]
  5. MiraLAX - 17 grams by mouth twice daily [Concomitant]
  6. Senna Docusate 17/100 mg by mouth at bedtime [Concomitant]
  7. Simethicone Chew - 80 mg by mouth four times daily [Concomitant]

REACTIONS (2)
  - Antipsychotic drug level below therapeutic [None]
  - Lethargy [None]

NARRATIVE: CASE EVENT DATE: 20220513
